FAERS Safety Report 9509979 (Version 2)
Quarter: 2013Q3

REPORT INFORMATION
  Report Type: Spontaneous
  Country: US (occurrence: US)
  Receive Date: 20130909
  Receipt Date: 20130917
  Transmission Date: 20140515
  Serious: Yes (Hospitalization, Other)
  Sender: FDA-Public Use
  Company Number: US-GILEAD-2013-0082904

PATIENT
  Sex: Female

DRUGS (4)
  1. LETAIRIS [Suspect]
     Indication: PULMONARY HYPERTENSION
     Dosage: 10 MG, QD
     Route: 048
     Dates: start: 20120417
  2. LETAIRIS [Suspect]
     Indication: DRUG ABUSE
  3. TYVASO [Suspect]
     Indication: PRODUCT USED FOR UNKNOWN INDICATION
     Dosage: UNK DF, UNK
  4. TYVASO [Suspect]
     Dosage: 12 DF, QD

REACTIONS (5)
  - Cardiac failure congestive [Unknown]
  - Diabetes mellitus [Unknown]
  - Nasal congestion [Unknown]
  - Fluid retention [Unknown]
  - Cough [Unknown]
